FAERS Safety Report 16274590 (Version 1)
Quarter: 2019Q2

REPORT INFORMATION
  Report Type: Spontaneous
  Country: CL (occurrence: CL)
  Receive Date: 20190504
  Receipt Date: 20190504
  Transmission Date: 20190711
  Serious: Yes (Hospitalization)
  Sender: FDA-Public Use
  Company Number: PHHY2019CL101966

PATIENT
  Age: 26 Year
  Sex: Male

DRUGS (5)
  1. PHENTERMINE. [Suspect]
     Active Substance: PHENTERMINE
     Indication: PRODUCT USED FOR UNKNOWN INDICATION
     Dosage: UNK
     Route: 065
  2. METFORMIN [Suspect]
     Active Substance: METFORMIN HYDROCHLORIDE
     Indication: INSULIN RESISTANCE
     Route: 065
  3. ABACAVIR. [Suspect]
     Active Substance: ABACAVIR
     Indication: HIV INFECTION
     Route: 065
  4. LAMIVUDINE. [Suspect]
     Active Substance: LAMIVUDINE
     Indication: HIV INFECTION
     Route: 065
  5. DOLUTEGRAVIR [Suspect]
     Active Substance: DOLUTEGRAVIR
     Indication: HIV INFECTION
     Route: 065

REACTIONS (9)
  - Drug-induced liver injury [Unknown]
  - Liver function test abnormal [Unknown]
  - Acute hepatic failure [Recovering/Resolving]
  - Product use in unapproved indication [Unknown]
  - Hepatic encephalopathy [Unknown]
  - Choluria [Unknown]
  - Jaundice [Unknown]
  - General physical health deterioration [Unknown]
  - Hepatitis [Unknown]
